FAERS Safety Report 14379737 (Version 2)
Quarter: 2018Q1

REPORT INFORMATION
  Report Type: Spontaneous
  Country: TR (occurrence: TR)
  Receive Date: 20180112
  Receipt Date: 20180119
  Transmission Date: 20180509
  Serious: Yes (Other)
  Sender: FDA-Public Use
  Company Number: TR-ROCHE-2054752

PATIENT
  Age: 83 Year
  Sex: Male

DRUGS (2)
  1. PREDNISOLONE. [Concomitant]
     Active Substance: PREDNISOLONE
     Indication: PEMPHIGOID
     Route: 065
  2. OMALIZUMAB. [Suspect]
     Active Substance: OMALIZUMAB
     Indication: PEMPHIGOID
     Route: 058

REACTIONS (4)
  - Thrombocytopenia [Unknown]
  - Product use in unapproved indication [Unknown]
  - Off label use [Unknown]
  - Myocardial infarction [Unknown]
